FAERS Safety Report 8087394-3 (Version None)
Quarter: 2012Q1

REPORT INFORMATION
  Report Type: 
  Country: None (occurrence: None)
  Receive Date: 20120128
  Receipt Date: 20110509
  Transmission Date: 20120608
  Serious: No
  Sender: FDA-Public Use
  Company Number: US-ABBOTT-11P-163-0724368-00

PATIENT
  Age: 76 Year
  Sex: Male

DRUGS (3)
  1. PENTASA [Concomitant]
     Indication: CROHN'S DISEASE
     Dates: start: 20110101
  2. ENTOCORT EC [Concomitant]
     Indication: CROHN'S DISEASE
     Dates: start: 20110101
  3. HUMIRA [Suspect]
     Indication: CROHN'S DISEASE
     Dates: start: 20110101

REACTIONS (1)
  - VISUAL ACUITY REDUCED [None]
